FAERS Safety Report 4513066-5 (Version None)
Quarter: 2004Q4

REPORT INFORMATION
  Report Type: 
  Country: None (occurrence: None)
  Receive Date: 20041124
  Receipt Date: 20041124
  Transmission Date: 20050328
  Serious: Yes (Life-Threatening, Hospitalization)
  Sender: FDA-Public Use
  Company Number: None

PATIENT
  Age: 47 Year
  Sex: Female

DRUGS (6)
  1. VISTARIL [Suspect]
     Indication: MIGRAINE
  2. TORADOL [Concomitant]
  3. VISICOL [Concomitant]
  4. SOMA [Concomitant]
  5. MAGNESIUM CITRATE [Concomitant]
  6. GOLYTELY [Concomitant]

REACTIONS (10)
  - BLOOD POTASSIUM DECREASED [None]
  - BLOOD SODIUM DECREASED [None]
  - CONVULSION [None]
  - DEPRESSED LEVEL OF CONSCIOUSNESS [None]
  - FALL [None]
  - GRAND MAL CONVULSION [None]
  - INJURY [None]
  - NUCLEAR MAGNETIC RESONANCE IMAGING BRAIN ABNORMAL [None]
  - SPINAL FRACTURE [None]
  - UPPER LIMB FRACTURE [None]
